FAERS Safety Report 16792188 (Version 2)
Quarter: 2019Q3

REPORT INFORMATION
  Report Type: Spontaneous
  Country: US (occurrence: US)
  Receive Date: 20190910
  Receipt Date: 20190917
  Transmission Date: 20191005
  Serious: Yes (Other)
  Sender: FDA-Public Use
  Company Number: US-BAYER-2019-044937

PATIENT
  Age: 72 Year
  Sex: Male
  Weight: 110.66 kg

DRUGS (5)
  1. METOPROLOL. [Concomitant]
     Active Substance: METOPROLOL
  2. INSULIN [Concomitant]
     Active Substance: INSULIN NOS
  3. LEVEMIR [Concomitant]
     Active Substance: INSULIN DETEMIR
  4. VICTOZA [Concomitant]
     Active Substance: LIRAGLUTIDE
  5. DR. SCHOLLS DURAGEL CALLUS REMOVERS [Suspect]
     Active Substance: SALICYLIC ACID
     Dosage: UNK
     Dates: start: 20150423

REACTIONS (4)
  - Decubitus ulcer [None]
  - Product monitoring error [Unknown]
  - Venous perforation [Unknown]
  - Contraindicated product administered [Unknown]

NARRATIVE: CASE EVENT DATE: 20150425
